FAERS Safety Report 5420791-0 (Version None)
Quarter: 2007Q3

REPORT INFORMATION
  Report Type: 
  Country: None (occurrence: None)
  Receive Date: 20070821
  Receipt Date: 20070811
  Transmission Date: 20080115
  Serious: Yes (Hospitalization)
  Sender: FDA-Public Use
  Company Number: US-AMGEN-STX238387

PATIENT
  Sex: Female

DRUGS (1)
  1. ENBREL [Suspect]
     Indication: RHEUMATOID ARTHRITIS
     Route: 058
     Dates: start: 20050203, end: 20070801

REACTIONS (4)
  - DIVERTICULITIS [None]
  - FLUID RETENTION [None]
  - HEPATOMEGALY [None]
  - INDURATION [None]
